FAERS Safety Report 25980291 (Version 2)
Quarter: 2025Q4

REPORT INFORMATION
  Report Type: Spontaneous
  Country: JP (occurrence: JP)
  Receive Date: 20251030
  Receipt Date: 20251121
  Transmission Date: 20260118
  Serious: Yes (Hospitalization)
  Sender: MERCK SHARP & DOHME LLC
  Company Number: JP-009507513-2343364

PATIENT
  Age: 73 Year
  Sex: Female

DRUGS (1)
  1. PEMBROLIZUMAB [Suspect]
     Active Substance: PEMBROLIZUMAB
     Indication: Breast cancer
     Route: 041

REACTIONS (4)
  - Gastrointestinal perforation [Unknown]
  - Thyrotoxic crisis [Unknown]
  - Thyroiditis [Unknown]
  - Immune-mediated hyperthyroidism [Unknown]
